FAERS Safety Report 13739192 (Version 2)
Quarter: 2018Q2

REPORT INFORMATION
  Report Type: Spontaneous
  Country: US (occurrence: US)
  Receive Date: 20170710
  Receipt Date: 20180627
  Transmission Date: 20180711
  Serious: Yes (Other)
  Sender: FDA-Public Use
  Company Number: US-SAOL THERAPEUTICS-2017SAO00917

PATIENT
  Age: 48 Year
  Sex: Female
  Weight: 65.31 kg

DRUGS (4)
  1. FENTANYL. [Suspect]
     Active Substance: FENTANYL
     Dosage: 1450 ?G, \DAY
     Route: 037
     Dates: end: 20170522
  2. FENTANYL. [Suspect]
     Active Substance: FENTANYL
     Dosage: 18.0 ?G, \DAY
     Dates: start: 20170522
  3. COMPOUNDED BACLOFEN [Suspect]
     Active Substance: BACLOFEN
     Indication: SPINAL PAIN
     Dosage: 2.99 ?G, \DAY
     Dates: start: 20170522
  4. COMPOUNDED BACLOFEN [Suspect]
     Active Substance: BACLOFEN
     Indication: PAIN
     Dosage: 241.68 ?G, \DAY
     Route: 037
     Dates: end: 20170522

REACTIONS (4)
  - Off label use [Not Recovered/Not Resolved]
  - Drug withdrawal syndrome [Recovered/Resolved]
  - Device failure [Recovered/Resolved]
  - Pain [Recovered/Resolved]

NARRATIVE: CASE EVENT DATE: 20170520
